FAERS Safety Report 9308013 (Version 1)
Quarter: 2013Q2

REPORT INFORMATION
  Report Type: Report from Study
  Country: AZ (occurrence: AZ)
  Receive Date: 20130524
  Receipt Date: 20130524
  Transmission Date: 20140414
  Serious: Yes (Life-Threatening, Other)
  Sender: FDA-Public Use
  Company Number: PHHY2013AZ049398

PATIENT
  Sex: Male

DRUGS (2)
  1. GLIVEC [Suspect]
     Indication: CHRONIC MYELOID LEUKAEMIA
     Dosage: 400 MG
     Route: 048
  2. GLIVEC [Suspect]
     Dosage: 600 MG
     Route: 048

REACTIONS (3)
  - Chronic myeloid leukaemia [Not Recovered/Not Resolved]
  - Hepatosplenomegaly [Unknown]
  - Asthenia [Unknown]
